FAERS Safety Report 9499042 (Version 3)
Quarter: 2013Q4

REPORT INFORMATION
  Report Type: Report from Study
  Country: IE (occurrence: IE)
  Receive Date: 20130904
  Receipt Date: 20131125
  Transmission Date: 20140711
  Serious: Yes (Other)
  Sender: FDA-Public Use
  Company Number: IE-ROCHE-1269294

PATIENT
  Age: 37 Year
  Sex: Female
  Weight: 54 kg

DRUGS (14)
  1. XOLAIR [Suspect]
     Indication: ASTHMA
     Route: 058
     Dates: start: 20130314
  2. XOLAIR [Suspect]
     Route: 058
  3. XOLAIR [Suspect]
     Route: 058
     Dates: start: 20130725
  4. XOLAIR [Suspect]
     Route: 058
     Dates: start: 20130822
  5. XOLAIR [Suspect]
     Route: 058
     Dates: start: 20130919
  6. XOLAIR [Suspect]
     Route: 058
     Dates: start: 20130530
  7. XOLAIR [Suspect]
     Route: 058
     Dates: start: 20130626
  8. XOLAIR [Suspect]
     Route: 058
  9. XOLAIR [Suspect]
     Route: 058
  10. SINGULAR [Concomitant]
     Route: 065
     Dates: end: 2007
  11. TELFAST (IRELAND) [Concomitant]
     Route: 065
     Dates: end: 2007
  12. SERETIDE [Concomitant]
     Route: 065
     Dates: end: 2007
  13. VENTOLIN [Concomitant]
     Route: 065
  14. AVAMYS [Concomitant]
     Route: 065
     Dates: start: 2011

REACTIONS (16)
  - Mastitis [Unknown]
  - Asthma [Recovered/Resolved]
  - Weight decreased [Unknown]
  - Vomiting [Recovered/Resolved]
  - Oropharyngeal pain [Recovered/Resolved]
  - Nausea [Recovered/Resolved]
  - Local swelling [Recovered/Resolved]
  - Injection site erythema [Recovered/Resolved]
  - Cough [Recovered/Resolved]
  - Injection site warmth [Unknown]
  - Tooth abscess [Unknown]
  - Pyrexia [Recovered/Resolved]
  - White blood cell count decreased [Unknown]
  - Urinary tract infection [Unknown]
  - Wheezing [Unknown]
  - Cellulitis [Unknown]
